FAERS Safety Report 19009048 (Version 1)
Quarter: 2021Q1

REPORT INFORMATION
  Report Type: Spontaneous
  Country: DE (occurrence: DE)
  Receive Date: 20210315
  Receipt Date: 20210315
  Transmission Date: 20210420
  Serious: Yes (Hospitalization, Other)
  Sender: FDA-Public Use
  Company Number: DE-HIKMA PHARMACEUTICALS USA INC.-DE-H14001-21-53807

PATIENT
  Age: 14 Year
  Sex: Male
  Weight: 42 kg

DRUGS (10)
  1. VIGANTOL OEL 20000IE/ML [Concomitant]
     Indication: VITAMIN D DEFICIENCY
     Route: 048
  2. PREDNISOLONE. [Suspect]
     Active Substance: PREDNISOLONE
     Indication: TRANSPLANT REJECTION
     Dosage: 40MG ? 20MG
     Route: 048
     Dates: start: 20191222, end: 20191228
  3. EINSALPHA TROPFEN [Concomitant]
     Indication: CHRONIC KIDNEY DISEASE-MINERAL AND BONE DISORDER
     Dosage: DAILY DOSE: 18 GTT DROP(S) EVERY DAYS
     Route: 048
     Dates: start: 20100630
  4. AMLODIPIN [Concomitant]
     Active Substance: AMLODIPINE BESYLATE
     Indication: RENAL HYPERTENSION
     Dosage: DAILY DOSE: 10 MG MILLGRAM(S) EVERY DAYS 2 SEPARATED DOSES
     Route: 048
     Dates: start: 20170901
  5. METHYLPREDNISOLONE. [Suspect]
     Active Substance: METHYLPREDNISOLONE
     Indication: TRANSPLANT REJECTION
     Dosage: UNKNOWN
     Route: 042
     Dates: start: 20191218, end: 20191221
  6. MAGNESIUM VERLA N [Concomitant]
     Active Substance: MAGNESIUM
     Indication: BLOOD MAGNESIUM ABNORMAL
     Route: 048
     Dates: start: 20180205
  7. CELLCEPT 200MG/ML SAFT [Concomitant]
     Indication: RENAL TRANSPLANT
     Dosage: DAILY DOSE: 800 MG MILLGRAM(S) EVERY DAYS 2 SEPARATED DOSES
     Route: 048
     Dates: start: 201011
  8. BICANORM [Concomitant]
     Active Substance: SODIUM BICARBONATE
     Indication: RENAL TUBULAR ACIDOSIS
     Dosage: DAILY DOSE: 6 G GRAM(S) EVERY DAYS 3 SEPARATED DOSES
     Route: 048
     Dates: start: 201009
  9. FERRUM HAUSMANN 50MG/ML [Concomitant]
     Indication: IRON DEFICIENCY
     Route: 048
     Dates: start: 201907
  10. TACROLIMUS. [Concomitant]
     Active Substance: TACROLIMUS
     Indication: RENAL TRANSPLANT
     Dosage: DAILY DOSE: 4.4 MG MILLGRAM(S) EVERY DAYS 2 SEPARATED DOSES
     Route: 048
     Dates: start: 201703

REACTIONS (6)
  - Food craving [Recovered/Resolved]
  - Oedema [Recovered/Resolved]
  - Complications of transplant surgery [Recovered/Resolved]
  - Weight increased [Recovered/Resolved]
  - Abdominal distension [Recovered/Resolved]
  - Acute kidney injury [Recovered/Resolved]

NARRATIVE: CASE EVENT DATE: 20191227
